FAERS Safety Report 8262575-4 (Version None)
Quarter: 2012Q2

REPORT INFORMATION
  Report Type: 
  Country: None (occurrence: None)
  Receive Date: 20120405
  Receipt Date: 20120327
  Transmission Date: 20120825
  Serious: Yes (Other)
  Sender: FDA-Public Use
  Company Number: ES-MYLANLABS-2012S1006043

PATIENT
  Age: 30 Year
  Sex: Male

DRUGS (2)
  1. CYSTAGON [Suspect]
     Indication: CYSTINOSIS
     Dosage: 150MG
     Route: 048
     Dates: start: 20090528, end: 20101228
  2. CYSTAGON [Suspect]
     Route: 048

REACTIONS (4)
  - NERVOUSNESS [None]
  - HALLUCINATION [None]
  - PSYCHOTIC DISORDER [None]
  - PRE-EXISTING DISEASE [None]
